FAERS Safety Report 8019617-0 (Version None)
Quarter: 2012Q1

REPORT INFORMATION
  Report Type: 
  Country: None (occurrence: None)
  Receive Date: 20120103
  Receipt Date: 20111221
  Transmission Date: 20120608
  Serious: Yes (Hospitalization)
  Sender: FDA-Public Use
  Company Number: US-GLAXOSMITHKLINE-A0922112A

PATIENT
  Age: 71 Year
  Sex: Male

DRUGS (7)
  1. LODINE [Concomitant]
  2. CAPTOPRIL [Concomitant]
     Dates: end: 20050101
  3. PROTONIX [Concomitant]
  4. NORVASC [Concomitant]
  5. ZESTRIL [Concomitant]
     Dates: start: 20050101
  6. ZOCOR [Concomitant]
  7. AVANDIA [Suspect]
     Indication: DIABETES MELLITUS
     Dosage: 4MG TWICE PER DAY
     Route: 048

REACTIONS (4)
  - CARDIAC FAILURE CONGESTIVE [None]
  - CARDIOMYOPATHY [None]
  - WEIGHT DECREASED [None]
  - MYOCARDIAL INFARCTION [None]
